FAERS Safety Report 7437547-X (Version None)
Quarter: 2011Q2

REPORT INFORMATION
  Report Type: 
  Country: None (occurrence: None)
  Receive Date: 20110426
  Receipt Date: 20110422
  Transmission Date: 20111010
  Serious: Yes (Other)
  Sender: FDA-Public Use
  Company Number: US-ABBOTT-11P-163-0721221-00

PATIENT
  Sex: Female

DRUGS (1)
  1. HUMIRA [Suspect]
     Indication: CROHN'S DISEASE
     Dates: start: 20100215

REACTIONS (4)
  - OVARIAN RUPTURE [None]
  - ECTOPIC PREGNANCY [None]
  - ABDOMINAL PAIN [None]
  - VAGINAL HAEMORRHAGE [None]
